FAERS Safety Report 8585986-6 (Version None)
Quarter: 2012Q3

REPORT INFORMATION
  Report Type: 
  Country: None (occurrence: None)
  Receive Date: 20120810
  Receipt Date: 20120802
  Transmission Date: 20120928
  Serious: Yes (Other)
  Sender: FDA-Public Use
  Company Number: FR-ACTELION-A-CH2012-69662

PATIENT
  Age: 37 Year
  Sex: Male

DRUGS (6)
  1. ILOPROST [Concomitant]
  2. TRACLEER [Suspect]
     Dosage: 62.5 MG, BID
     Route: 048
     Dates: start: 20080804, end: 20080901
  3. PANTOPRAZOLE SODIUM [Concomitant]
  4. TRACLEER [Suspect]
     Indication: DIGITAL ULCER
     Dosage: 125 MG, BID
     Route: 048
     Dates: start: 20080901, end: 20110119
  5. RAMIPRIL [Concomitant]
  6. CELLCEPT [Concomitant]

REACTIONS (3)
  - DIGITAL ULCER [None]
  - DRUG INEFFECTIVE [None]
  - DISEASE RECURRENCE [None]
